FAERS Safety Report 8796149 (Version 1)
Quarter: 2012Q4

REPORT INFORMATION
  Report Type: 
  Country: US (occurrence: US)
  Receive Date: 20120919
  Receipt Date: 20120919
  Transmission Date: 20130627
  Serious: No
  Sender: FDA-Public Use
  Company Number: US-BAYER-2012-095896

PATIENT
  Age: 38 Year
  Sex: Female

DRUGS (3)
  1. MIRENA [Suspect]
     Indication: CONTRACEPTION
     Dosage: 20 mcg/24hr, CONT
     Route: 015
     Dates: start: 20120503
  2. MIRENA [Suspect]
     Indication: MENORRHAGIA
  3. ORAL CONTRACEPTIVE NOS [Concomitant]

REACTIONS (2)
  - Device expulsion [Recovered/Resolved]
  - Device expulsion [Not Recovered/Not Resolved]
